FAERS Safety Report 7619718-2 (Version None)
Quarter: 2011Q3

REPORT INFORMATION
  Report Type: 
  Country: None (occurrence: None)
  Receive Date: 20110719
  Receipt Date: 20110708
  Transmission Date: 20111222
  Serious: Yes (Death)
  Sender: FDA-Public Use
  Company Number: US-ELI_LILLY_AND_COMPANY-US201106002651

PATIENT
  Sex: Female

DRUGS (16)
  1. ADVAIR DISKUS 100/50 [Concomitant]
     Dosage: UNK
     Route: 048
  2. SPIRIVA [Concomitant]
     Dosage: UNK, QD
  3. PEPCID [Concomitant]
     Dosage: 20 MG, QD
     Route: 048
  4. SINGULAIR [Concomitant]
     Dosage: 10 MG, QD
     Route: 048
  5. LASIX [Concomitant]
     Dosage: 20 UG, QD
     Route: 048
  6. PAXIL [Concomitant]
     Dosage: 30 UG, QD
     Route: 048
  7. PROVENTIL                          /00139501/ [Concomitant]
     Dosage: UNK, PRN
  8. LISINOPRIL [Concomitant]
     Dosage: 25 MG, QD
     Route: 048
  9. PREDNISONE [Concomitant]
     Dosage: 5 MG, QD
     Route: 048
  10. HYDROCODONE [Concomitant]
     Dosage: UNK, PRN
     Route: 048
  11. FENTANYL-100 [Concomitant]
     Dosage: 75 MEQ, OTHER
  12. TRAMADOL HCL [Concomitant]
     Dosage: 50 MG, PRN
  13. FORTEO [Suspect]
  14. METOPROLOL TARTRATE [Concomitant]
     Dosage: 25 MG, QD
     Route: 048
  15. ATIVAN [Concomitant]
     Dosage: 0.5 MG, QD
  16. REMERON [Concomitant]
     Dosage: 15 MG, OTHER
     Route: 048

REACTIONS (1)
  - RESPIRATORY FAILURE [None]
